FAERS Safety Report 9907628 (Version 2)
Quarter: 2014Q1

REPORT INFORMATION
  Report Type: Spontaneous
  Country: US (occurrence: US)
  Receive Date: 20140219
  Receipt Date: 20140221
  Transmission Date: 20141002
  Serious: No
  Sender: FDA-Public Use
  Company Number: US-009507513-1402USA007709

PATIENT
  Age: 22 Year
  Sex: Female
  Weight: 83.9 kg

DRUGS (1)
  1. NUVARING [Suspect]
     Indication: CONTRACEPTION
     Dosage: 1 RING FOR 3 WEEKS ON AND 1 WEEK OFF
     Route: 067
     Dates: start: 201202

REACTIONS (3)
  - Device breakage [Unknown]
  - Vulvovaginal discomfort [Recovered/Resolved]
  - Product quality issue [Unknown]
